FAERS Safety Report 9464998 (Version 4)
Quarter: 2013Q3

REPORT INFORMATION
  Report Type: Spontaneous
  Country: US (occurrence: US)
  Receive Date: 20130819
  Receipt Date: 20130912
  Transmission Date: 20140515
  Serious: Yes (Death, Hospitalization, Other)
  Sender: FDA-Public Use
  Company Number: US-GILEAD-2013-0081536

PATIENT
  Age: 59 Year
  Sex: Female

DRUGS (5)
  1. LETAIRIS [Suspect]
     Indication: PULMONARY HYPERTENSION
     Dosage: 5 MG, QD
     Dates: start: 20101022, end: 20130823
  2. LETAIRIS [Suspect]
     Indication: BRONCHIECTASIS
  3. LETAIRIS [Suspect]
     Indication: INTERSTITIAL LUNG DISEASE
  4. LETAIRIS [Suspect]
     Indication: RHEUMATOID ARTHRITIS
  5. LETAIRIS [Suspect]
     Indication: CARDIAC DISORDER

REACTIONS (2)
  - Death [Fatal]
  - Dyspnoea [Unknown]
